FAERS Safety Report 5695859-4 (Version None)
Quarter: 2008Q2

REPORT INFORMATION
  Report Type: 
  Country: None (occurrence: None)
  Receive Date: 20080407
  Receipt Date: 20080402
  Transmission Date: 20081010
  Serious: Yes (Other)
  Sender: FDA-Public Use
  Company Number: GB-ROCHE-556788

PATIENT
  Sex: Female
  Weight: 93.4 kg

DRUGS (2)
  1. ORLISTAT [Suspect]
     Indication: OBESITY
     Route: 048
     Dates: start: 20071002, end: 20080301
  2. UNSPECIFIED DRUG [Concomitant]
     Indication: ASTHMA
     Dosage: THE DRUG IS A SPRAY

REACTIONS (1)
  - GASTRIC CANCER [None]
